FAERS Safety Report 6055501-X (Version None)
Quarter: 2009Q1

REPORT INFORMATION
  Report Type: 
  Country: None (occurrence: None)
  Receive Date: 20090128
  Receipt Date: 20090121
  Transmission Date: 20090719
  Serious: Yes (Congenital Anomaly)
  Sender: FDA-Public Use
  Company Number: A0747580A

PATIENT
  Sex: Female

DRUGS (1)
  1. PAXIL [Suspect]
     Indication: DEPRESSION
     Dosage: 20MG PER DAY
     Dates: start: 20001001, end: 20011201

REACTIONS (9)
  - CAESAREAN SECTION [None]
  - DERMAL SINUS [None]
  - DETRUSOR SPHINCTER DYSSYNERGIA [None]
  - DRUG EXPOSURE DURING PREGNANCY [None]
  - LIPOMENINGOCELE [None]
  - MULTIPLE CONGENITAL ABNORMALITIES [None]
  - RENAL DISORDER [None]
  - SPINA BIFIDA [None]
  - SYRINGOMYELIA [None]
